FAERS Safety Report 19149734 (Version 1)
Quarter: 2021Q2

REPORT INFORMATION
  Report Type: Spontaneous
  Country: IT (occurrence: IT)
  Receive Date: 20210417
  Receipt Date: 20210417
  Transmission Date: 20210717
  Serious: Yes (Life-Threatening, Hospitalization)
  Sender: FDA-Public Use
  Company Number: IT-LUPIN PHARMACEUTICALS INC.-2021-04756

PATIENT
  Age: 14 Month
  Sex: Male
  Weight: 9.9 kg

DRUGS (3)
  1. NADOLOL. [Suspect]
     Active Substance: NADOLOL
     Dosage: 1 MILLIGRAM/KILOGRAM, QD (DOSE DOUBLED)
     Route: 065
  2. NADOLOL. [Suspect]
     Active Substance: NADOLOL
     Indication: LONG QT SYNDROME
     Dosage: 0.5 MILLIGRAM/KILOGRAM, QD (SLOW?RELEASE NADOLOL ADMINISTRATED AS AN INDIVIDUALISED GALENIC PREPARAT
     Route: 065
  3. PROPRANOLOL [Suspect]
     Active Substance: PROPRANOLOL HYDROCHLORIDE
     Indication: LONG QT SYNDROME
     Dosage: UNK 3 TIMES A DAY
     Route: 065

REACTIONS (4)
  - Ketonuria [Recovered/Resolved]
  - Metabolic acidosis [Recovered/Resolved]
  - Off label use [Unknown]
  - Hypoglycaemia [Recovered/Resolved]
